FAERS Safety Report 22267699 (Version 1)
Quarter: 2023Q2

REPORT INFORMATION
  Report Type: Spontaneous
  Country: IN (occurrence: IN)
  Receive Date: 20230430
  Receipt Date: 20230430
  Transmission Date: 20230721
  Serious: Yes (Hospitalization, Other)
  Sender: FDA-Public Use
  Company Number: IN-STRIDES ARCOLAB LIMITED-2023SP005945

PATIENT
  Age: 2 Decade
  Sex: Male

DRUGS (2)
  1. NAPROXEN [Suspect]
     Active Substance: NAPROXEN
     Indication: Arthralgia
     Dosage: UNK
     Route: 065
  2. INDOMETHACIN [Suspect]
     Active Substance: INDOMETHACIN
     Indication: Arthralgia
     Dosage: UNK
     Route: 065

REACTIONS (3)
  - Psoriatic arthropathy [Recovered/Resolved]
  - Psoriasis [Recovered/Resolved]
  - Intentional product misuse [Unknown]
